FAERS Safety Report 10161068 (Version 1)
Quarter: 2014Q2

REPORT INFORMATION
  Report Type: Spontaneous
  Country: US (occurrence: US)
  Receive Date: 20140508
  Receipt Date: 20140508
  Transmission Date: 20141212
  Serious: No
  Sender: FDA-Public Use
  Company Number: US-PFIZER INC-2014122663

PATIENT
  Age: 40 Year
  Sex: Male
  Weight: 126 kg

DRUGS (2)
  1. NEURONTIN [Suspect]
     Indication: BACK PAIN
     Dosage: 300 MG, 3X/DAY
  2. BACLOFEN [Concomitant]
     Indication: GASTROOESOPHAGEAL REFLUX DISEASE
     Dosage: ONE 10 MG TABLET IN THE MORNING AND TWO 10 MG TABLES AT NIGHT

REACTIONS (1)
  - Drug ineffective [Unknown]
